FAERS Safety Report 4470167-8 (Version None)
Quarter: 2004Q3

REPORT INFORMATION
  Report Type: 
  Country: None (occurrence: None)
  Receive Date: 20040910
  Receipt Date: 20040729
  Transmission Date: 20050211
  Serious: No
  Sender: FDA-Public Use
  Company Number: 2004227024US

PATIENT
  Age: 74 Year
  Sex: Female
  Weight: 68.9 kg

DRUGS (4)
  1. BEXTRA [Suspect]
     Indication: ARTHRITIS
     Dosage: 20 MG, QD
     Dates: start: 20040728
  2. NIACIN [Concomitant]
  3. GLUCOSAMINE [Concomitant]
  4. MULTIVITAMIN [Concomitant]

REACTIONS (3)
  - DRUG INEFFECTIVE [None]
  - HEADACHE [None]
  - PSYCHOMOTOR HYPERACTIVITY [None]
